FAERS Safety Report 10762296 (Version 1)
Quarter: 2015Q1

REPORT INFORMATION
  Report Type: Spontaneous
  Country: US (occurrence: US)
  Receive Date: 20150204
  Receipt Date: 20150204
  Transmission Date: 20150721
  Serious: Yes (Death)
  Sender: FDA-Public Use
  Company Number: US-PERRIGO-15US001175

PATIENT
  Age: 26 Year
  Sex: Male

DRUGS (4)
  1. AMPHETAMINE [Suspect]
     Active Substance: AMPHETAMINE
     Indication: DRUG ABUSE
     Route: 065
  2. IBUPROFEN 200 MG 604 [Suspect]
     Active Substance: IBUPROFEN
     Indication: DRUG ABUSE
     Route: 065
  3. VASODILATORS [Suspect]
     Active Substance: UNSPECIFIED INGREDIENT
     Indication: DRUG ABUSE
     Route: 065
  4. GAMMA-HYDROXYBUTYRATE [Suspect]
     Active Substance: 4-HYDROXYBUTANOIC ACID
     Indication: DRUG ABUSE
     Route: 065

REACTIONS (1)
  - Death [Fatal]
